FAERS Safety Report 9558310 (Version 5)
Quarter: 2014Q2

REPORT INFORMATION
  Report Type: Report from Study
  Country: US (occurrence: US)
  Receive Date: 20130926
  Receipt Date: 20140415
  Transmission Date: 20141212
  Serious: Yes (Hospitalization, Other)
  Sender: FDA-Public Use
  Company Number: US-ROCHE-1230110

PATIENT
  Age: 80 Year
  Sex: Female
  Weight: 64.92 kg

DRUGS (20)
  1. ACTEMRA [Suspect]
     Indication: RHEUMATOID ARTHRITIS
     Dosage: MOST RECENT MONTHLY INFUSION WAS,ON 03/APR/2014
     Route: 042
     Dates: start: 20130214, end: 201305
  2. ACTEMRA [Suspect]
     Route: 065
     Dates: start: 201305
  3. ACTEMRA [Suspect]
     Route: 042
     Dates: start: 201307
  4. ACTEMRA [Suspect]
     Route: 042
     Dates: start: 201202, end: 201208
  5. ACTEMRA [Suspect]
     Route: 042
     Dates: start: 2012
  6. ACTEMRA [Suspect]
     Route: 042
     Dates: start: 20120321
  7. METHOTREXATE [Concomitant]
     Route: 048
  8. METHOTREXATE [Concomitant]
     Route: 065
  9. LISINOPRIL [Concomitant]
     Indication: HYPERTENSION
     Route: 065
  10. AMIODARONE [Concomitant]
     Indication: VENTRICULAR TACHYCARDIA
     Route: 065
  11. HYDROCHLOROTHIAZIDE [Concomitant]
     Indication: BLOOD PRESSURE
     Route: 065
  12. XARELTO [Concomitant]
     Indication: ANTICOAGULANT THERAPY
     Route: 065
  13. TYLENOL [Concomitant]
  14. PREDNISONE [Concomitant]
     Route: 048
  15. ACETAMINOPHEN [Concomitant]
     Route: 048
  16. FOLIC ACID [Concomitant]
     Route: 065
  17. IBUPROFEN [Concomitant]
     Route: 065
  18. ALENDRONATE [Concomitant]
     Route: 065
  19. CLONIDINE [Concomitant]
     Indication: BLOOD PRESSURE INCREASED
     Route: 065
  20. OXYCODONE [Concomitant]
     Indication: PAIN
     Route: 065

REACTIONS (18)
  - Food allergy [Recovering/Resolving]
  - Basal cell carcinoma [Unknown]
  - Abdominal pain [Unknown]
  - Fatigue [Unknown]
  - Cholecystectomy [Recovered/Resolved]
  - Hepatic enzyme increased [Unknown]
  - Drug ineffective [Unknown]
  - Finger deformity [Not Recovered/Not Resolved]
  - Pain [Not Recovered/Not Resolved]
  - Swelling [Unknown]
  - Foot deformity [Not Recovered/Not Resolved]
  - Headache [Recovered/Resolved]
  - Musculoskeletal pain [Unknown]
  - Neck pain [Unknown]
  - Abdominal pain upper [Unknown]
  - Therapeutic response decreased [Unknown]
  - Wound [Not Recovered/Not Resolved]
  - Laceration [Not Recovered/Not Resolved]
